FAERS Safety Report 8488487-9 (Version None)
Quarter: 2012Q3

REPORT INFORMATION
  Report Type: 
  Country: None (occurrence: None)
  Receive Date: 20120705
  Receipt Date: 20120629
  Transmission Date: 20120928
  Serious: Yes (Other)
  Sender: FDA-Public Use
  Company Number: BR-PFIZER INC-2012158978

PATIENT
  Age: 37 Year
  Sex: Female
  Weight: 44 kg

DRUGS (3)
  1. CAPTOPRIL [Concomitant]
     Dosage: 25 MG, 1X/DAY
  2. SUTENT [Suspect]
     Indication: RENAL CANCER
     Dosage: 50 MG, 1X/DAY
     Route: 048
  3. HYDROCHLOROTHIAZIDE [Concomitant]
     Dosage: 25 MG, 1X/DAY

REACTIONS (2)
  - BLOOD PRESSURE INCREASED [None]
  - IMMUNODEFICIENCY [None]
